FAERS Safety Report 9662691 (Version 1)
Quarter: 2013Q4

REPORT INFORMATION
  Report Type: Spontaneous
  Country: US (occurrence: US)
  Receive Date: 20131031
  Receipt Date: 20131031
  Transmission Date: 20140711
  Serious: No
  Sender: FDA-Public Use
  Company Number: US-PURDUE-USA-2011-0073816

PATIENT
  Sex: Female

DRUGS (2)
  1. OXYCONTIN (NDA 22-272) [Suspect]
     Indication: NEUROPATHY PERIPHERAL
     Dosage: 40 MG, UNK
     Dates: start: 20110811
  2. OXYCONTIN (NDA 22-272) [Suspect]
     Dosage: 20 MG, UNK
     Dates: start: 20110811

REACTIONS (4)
  - Feeling abnormal [Unknown]
  - Anxiety [Unknown]
  - Dizziness [Unknown]
  - Drug ineffective [Unknown]
